FAERS Safety Report 5189491-9 (Version None)
Quarter: 2006Q4

REPORT INFORMATION
  Report Type: 
  Country: None (occurrence: None)
  Receive Date: 20061221
  Receipt Date: 20041012
  Transmission Date: 20070319
  Serious: No
  Sender: FDA-Public Use
  Company Number: US-AMGEN-US095056

PATIENT
  Sex: Female

DRUGS (3)
  1. ENBREL [Suspect]
     Indication: JUVENILE ARTHRITIS
     Route: 058
     Dates: start: 20040801
  2. SINGULAIR [Concomitant]
     Dates: start: 20040901
  3. TOLMETIN SODIUM [Concomitant]

REACTIONS (3)
  - CYST [None]
  - HYPOAESTHESIA [None]
  - PARAESTHESIA [None]
